FAERS Safety Report 7603456-6 (Version None)
Quarter: 2011Q3

REPORT INFORMATION
  Report Type: 
  Country: None (occurrence: None)
  Receive Date: 20110712
  Receipt Date: 20110705
  Transmission Date: 20111222
  Serious: Yes (Congenital Anomaly, Other)
  Sender: FDA-Public Use
  Company Number: US-PFIZER INC-2011151237

PATIENT
  Sex: Female
  Weight: 3 kg

DRUGS (1)
  1. ZOLOFT [Suspect]
     Dosage: 50 MG, UNK
     Route: 064
     Dates: end: 20060216

REACTIONS (8)
  - CRANIOSYNOSTOSIS [None]
  - PLAGIOCEPHALY [None]
  - SUBGALEAL HAEMATOMA [None]
  - MATERNAL EXPOSURE DURING PREGNANCY [None]
  - CEPHALHAEMATOMA [None]
  - CONJUNCTIVITIS [None]
  - URINARY TRACT INFECTION [None]
  - EAR INFECTION [None]
